FAERS Safety Report 6662360-0 (Version None)
Quarter: 2010Q1

REPORT INFORMATION
  Report Type: 
  Country: None (occurrence: None)
  Receive Date: 20100331
  Receipt Date: 20100305
  Transmission Date: 20100710
  Serious: No
  Sender: FDA-Public Use
  Company Number: US-ABBOTT-10P-163-0631891-00

PATIENT
  Sex: Female
  Weight: 60.382 kg

DRUGS (1)
  1. LUPRON DEPOT [Suspect]
     Indication: SURGERY
     Dates: start: 20090801, end: 20090801

REACTIONS (3)
  - DYSMENORRHOEA [None]
  - MUSCLE TWITCHING [None]
  - PINEAL GLAND CYST [None]
